FAERS Safety Report 13023959 (Version 2)
Quarter: 2016Q4

REPORT INFORMATION
  Report Type: Spontaneous
  Country: IT (occurrence: IT)
  Receive Date: 20161213
  Receipt Date: 20161220
  Transmission Date: 20170207
  Serious: Yes (Hospitalization)
  Sender: FDA-Public Use
  Company Number: IT-JNJFOC-20161209956

PATIENT
  Age: 30 Year
  Sex: Male

DRUGS (3)
  1. RISPERDAL [Suspect]
     Active Substance: RISPERIDONE
     Indication: SCHIZOPHRENIA
     Route: 048
  2. RISPERDAL [Suspect]
     Active Substance: RISPERIDONE
     Indication: SCHIZOPHRENIA
     Route: 048
     Dates: start: 20141201, end: 20141201
  3. FELISON [Concomitant]
     Active Substance: FLURAZEPAM MONOHYDROCHLORIDE
     Indication: SCHIZOAFFECTIVE DISORDER
     Route: 048

REACTIONS (9)
  - Alanine aminotransferase increased [Recovering/Resolving]
  - Malaise [Unknown]
  - Drug abuse [Unknown]
  - Hyperglycaemia [Recovering/Resolving]
  - Tachycardia [Recovering/Resolving]
  - Somnolence [Unknown]
  - Intentional self-injury [Recovering/Resolving]
  - Tremor [Recovering/Resolving]
  - Sopor [Recovering/Resolving]

NARRATIVE: CASE EVENT DATE: 20141201
